FAERS Safety Report 4669988-8 (Version None)
Quarter: 2005Q2

REPORT INFORMATION
  Report Type: 
  Country: None (occurrence: None)
  Receive Date: 20050523
  Receipt Date: 20050511
  Transmission Date: 20051028
  Serious: Yes (Hospitalization)
  Sender: FDA-Public Use
  Company Number: 2005US000591

PATIENT
  Age: 63 Year
  Sex: Female
  Weight: 50.8 kg

DRUGS (7)
  1. ADENOSCAN [Suspect]
     Indication: SCAN MYOCARDIAL PERFUSION
     Dosage: IV NOS
     Route: 042
  2. ZOCOR [Concomitant]
  3. LISINOPRIL [Concomitant]
  4. LASIX [Concomitant]
  5. TOPROL-XL [Concomitant]
  6. FOSAMAX [Concomitant]
  7. DIGOXIN [Concomitant]

REACTIONS (2)
  - BRONCHOSPASM [None]
  - CARDIO-RESPIRATORY ARREST [None]
